FAERS Safety Report 9294805 (Version 1)
Quarter: 2013Q2

REPORT INFORMATION
  Report Type: Spontaneous
  Country: US (occurrence: US)
  Receive Date: 20130517
  Receipt Date: 20130517
  Transmission Date: 20140414
  Serious: Yes (Death, Hospitalization)
  Sender: FDA-Public Use
  Company Number: 2013SP000068

PATIENT
  Age: 94 Year
  Sex: Female

DRUGS (13)
  1. VANCOMYCIN [Suspect]
     Indication: PRODUCT USED FOR UNKNOWN INDICATION
     Route: 041
  2. ELTROMBOPAG OLAMINE [Suspect]
     Indication: IDIOPATHIC THROMBOCYTOPENIC PURPURA
     Route: 048
     Dates: start: 20090407
  3. ELTROMBOPAG OLAMINE [Suspect]
     Indication: IDIOPATHIC THROMBOCYTOPENIC PURPURA
     Route: 048
     Dates: end: 20120905
  4. LYRICA [Concomitant]
  5. XANAX [Concomitant]
  6. CARVEDILOL [Concomitant]
  7. ENALAPRIL [Concomitant]
  8. TYLENOL EXTRA STRENGTH [Concomitant]
  9. SERTRALINE [Concomitant]
  10. VACCINIUM MACROCARPON [Concomitant]
  11. ASCORBIC ACID [Concomitant]
  12. CULTURELLE [Concomitant]
  13. METHENAMINE [Concomitant]

REACTIONS (11)
  - Drug administration error [Fatal]
  - Cardio-respiratory arrest [Fatal]
  - Platelet count decreased [Not Recovered/Not Resolved]
  - Urinary tract infection [Not Recovered/Not Resolved]
  - Infection [Not Recovered/Not Resolved]
  - Pyrexia [Not Recovered/Not Resolved]
  - Disturbance in attention [Not Recovered/Not Resolved]
  - Fatigue [Not Recovered/Not Resolved]
  - Asthenia [Not Recovered/Not Resolved]
  - Decreased appetite [Not Recovered/Not Resolved]
  - Hypersomnia [Not Recovered/Not Resolved]
